FAERS Safety Report 7956258-5 (Version None)
Quarter: 2011Q4

REPORT INFORMATION
  Report Type: 
  Country: None (occurrence: None)
  Receive Date: 20111205
  Receipt Date: 20111121
  Transmission Date: 20120403
  Serious: Yes (Other)
  Sender: FDA-Public Use
  Company Number: DE-RANBAXY-2011RR-50088

PATIENT
  Age: 48 Year
  Sex: Female

DRUGS (1)
  1. CEFUROXIME [Suspect]
     Indication: TONSILLITIS
     Dosage: UNK
     Route: 048

REACTIONS (2)
  - OESOPHAGEAL ULCER [None]
  - PAIN [None]
